FAERS Safety Report 23548841 (Version 2)
Quarter: 2025Q1

REPORT INFORMATION
  Report Type: Spontaneous
  Country: US (occurrence: US)
  Receive Date: 20240221
  Receipt Date: 20250206
  Transmission Date: 20250408
  Serious: No
  Sender: ALMUS
  Company Number: US-ALMIRALL-US-2024-0362

PATIENT
  Sex: Female

DRUGS (1)
  1. KLISYRI [Suspect]
     Active Substance: TIRBANIBULIN

REACTIONS (4)
  - Product use in unapproved indication [Unknown]
  - Skin disorder [Recovered/Resolved]
  - Skin burning sensation [Recovered/Resolved]
  - Pain of skin [Recovered/Resolved]
